FAERS Safety Report 5414167-X (Version None)
Quarter: 2007Q3

REPORT INFORMATION
  Report Type: 
  Country: None (occurrence: None)
  Receive Date: 20070814
  Receipt Date: 20070802
  Transmission Date: 20080115
  Serious: Yes (Other)
  Sender: FDA-Public Use
  Company Number: PT-PFIZER INC-2007060841

PATIENT
  Age: 53 Year
  Sex: Female

DRUGS (3)
  1. LYRICA [Suspect]
     Indication: TRIGEMINAL NEURALGIA
     Route: 048
  2. PAROXETINE [Concomitant]
     Indication: DEPRESSION
     Route: 048
  3. CLOXAZOLAM [Concomitant]
     Indication: ANXIETY
     Route: 048

REACTIONS (2)
  - CONDITION AGGRAVATED [None]
  - DRUG INEFFECTIVE FOR UNAPPROVED INDICATION [None]
